FAERS Safety Report 9344447 (Version 2)
Quarter: 2013Q2

REPORT INFORMATION
  Report Type: Spontaneous
  Country: TR (occurrence: TR)
  Receive Date: 20130612
  Receipt Date: 20130618
  Transmission Date: 20140414
  Serious: Yes (Other)
  Sender: FDA-Public Use
  Company Number: PHHY2013TR058588

PATIENT
  Age: 35 Year
  Sex: Male

DRUGS (3)
  1. NEORAL [Suspect]
     Indication: HEART TRANSPLANT
     Dosage: 100 MG, PER DAY
  2. SERTRALINE [Interacting]
     Indication: MAJOR DEPRESSION
     Dosage: 25 MG, DAILY
  3. SERTRALINE [Interacting]
     Dosage: 50 MG, DAILY

REACTIONS (13)
  - Psychotic disorder [Recovered/Resolved]
  - Personality disorder [Recovered/Resolved]
  - Crying [Recovered/Resolved]
  - Inappropriate affect [Recovered/Resolved]
  - Affect lability [Recovered/Resolved]
  - Slow speech [Recovered/Resolved]
  - Judgement impaired [Recovered/Resolved]
  - Poverty of thought content [Recovered/Resolved]
  - Psychomotor retardation [Recovered/Resolved]
  - Hallucination, auditory [Recovered/Resolved]
  - Speech disorder [Recovered/Resolved]
  - Drug interaction [Unknown]
  - Immunosuppressant drug level increased [Recovered/Resolved]
